FAERS Safety Report 6317411-X (Version None)
Quarter: 2009Q3

REPORT INFORMATION
  Report Type: 
  Country: None (occurrence: None)
  Receive Date: 20090820
  Receipt Date: 20090820
  Transmission Date: 20100115
  Serious: No
  Sender: FDA-Public Use
  Company Number: None

PATIENT
  Sex: Male
  Weight: 93.8946 kg

DRUGS (1)
  1. CIPROFLAXACIN [Suspect]
     Indication: ENTEROBACTER INFECTION
     Dosage: 750 MG 2 PER DAY 047
     Dates: start: 20090724, end: 20090730

REACTIONS (1)
  - HYPERSENSITIVITY [None]
